FAERS Safety Report 19085963 (Version 7)
Quarter: 2024Q2

REPORT INFORMATION
  Report Type: Report from Study
  Country: JP (occurrence: JP)
  Receive Date: 20210402
  Receipt Date: 20240424
  Transmission Date: 20240716
  Serious: Yes (Other)
  Sender: FDA-Public Use
  Company Number: JP-KYOWAKIRIN-2021AKK000972

PATIENT

DRUGS (12)
  1. BUROSUMAB [Suspect]
     Active Substance: BUROSUMAB
     Indication: Hereditary hypophosphataemic rickets
     Dosage: 90 MG, 1X/4 WEEKS
     Route: 058
     Dates: start: 20200912, end: 20201107
  2. BUROSUMAB [Suspect]
     Active Substance: BUROSUMAB
     Dosage: 90 MG, 1X/4 WEEKS
     Route: 058
     Dates: start: 20201212, end: 20210109
  3. BUROSUMAB [Suspect]
     Active Substance: BUROSUMAB
     Dosage: 90 MG, 1X/4 WEEKS
     Route: 058
     Dates: start: 20210213, end: 20210508
  4. BUROSUMAB [Suspect]
     Active Substance: BUROSUMAB
     Dosage: 90 MG, 1X/4 WEEKS
     Route: 058
     Dates: start: 20210612, end: 20210710
  5. BUROSUMAB [Suspect]
     Active Substance: BUROSUMAB
     Dosage: 90 MG
     Route: 058
     Dates: start: 20210814
  6. BUROSUMAB [Suspect]
     Active Substance: BUROSUMAB
     Dosage: 90 UG, 1X/4 WEEKS
     Route: 058
  7. CILNIDIPINE\VALSARTAN [Concomitant]
     Active Substance: CILNIDIPINE\VALSARTAN
     Indication: Product used for unknown indication
     Dosage: UNK
     Route: 048
  8. GASTER [Concomitant]
     Active Substance: FAMOTIDINE
     Indication: Product used for unknown indication
     Dosage: UNK
     Route: 048
  9. SODIUM PHOSPHATE, DIBASIC\SODIUM PHOSPHATE, MONOBASIC [Concomitant]
     Active Substance: SODIUM PHOSPHATE, DIBASIC\SODIUM PHOSPHATE, MONOBASIC
     Indication: Hereditary hypophosphataemic rickets
     Dosage: 1000 MG
     Route: 048
     Dates: start: 20210109, end: 20210409
  10. SODIUM PHOSPHATE, DIBASIC\SODIUM PHOSPHATE, MONOBASIC [Concomitant]
     Active Substance: SODIUM PHOSPHATE, DIBASIC\SODIUM PHOSPHATE, MONOBASIC
     Dosage: 1200 MG
     Route: 048
     Dates: start: 20210410, end: 20210507
  11. SODIUM PHOSPHATE, DIBASIC\SODIUM PHOSPHATE, MONOBASIC [Concomitant]
     Active Substance: SODIUM PHOSPHATE, DIBASIC\SODIUM PHOSPHATE, MONOBASIC
     Dosage: 1600 MG
     Route: 048
     Dates: start: 20210508
  12. ALESION [Concomitant]
     Active Substance: EPINASTINE HYDROCHLORIDE
     Indication: Rhinitis allergic
     Dosage: UNK
     Route: 048

REACTIONS (3)
  - Iron deficiency anaemia [Recovering/Resolving]
  - Blood parathyroid hormone increased [Unknown]
  - Inappropriate schedule of product administration [Unknown]

NARRATIVE: CASE EVENT DATE: 20201001
